FAERS Safety Report 8800995 (Version 1)
Quarter: 2012Q4

REPORT INFORMATION
  Report Type: 
  Country: US (occurrence: US)
  Receive Date: 20120921
  Receipt Date: 20120921
  Transmission Date: 20130627
  Serious: Yes (Hospitalization)
  Sender: FDA-Public Use
  Company Number: US-GLAXOSMITHKLINE-A0899211A

PATIENT
  Age: 59 Year
  Sex: Female

DRUGS (1)
  1. AVANDIA [Suspect]
     Indication: DIABETES MELLITUS
     Dosage: 2MG Twice per day
     Route: 048

REACTIONS (5)
  - Myocardial infarction [Unknown]
  - Thrombosis [Unknown]
  - Arteriosclerosis [Unknown]
  - Stent placement [Unknown]
  - Cardiac operation [Unknown]
